FAERS Safety Report 5342493-1 (Version None)
Quarter: 2007Q2

REPORT INFORMATION
  Report Type: 
  Country: None (occurrence: None)
  Receive Date: 20070601
  Receipt Date: 20070521
  Transmission Date: 20071010
  Serious: Yes (Other)
  Sender: FDA-Public Use
  Company Number: GB-PFIZER INC-2007018802

PATIENT
  Age: 78 Year
  Sex: Male

DRUGS (2)
  1. XALATAN [Suspect]
     Indication: GLAUCOMA
     Route: 047
  2. ACETYLSALICYLIC ACID SRT [Concomitant]

REACTIONS (5)
  - RETINAL DETACHMENT [None]
  - VASCULAR OCCLUSION [None]
  - VENOUS STASIS RETINOPATHY [None]
  - VISUAL ACUITY REDUCED [None]
  - VITREOUS DETACHMENT [None]
